FAERS Safety Report 24711933 (Version 1)
Quarter: 2024Q4

REPORT INFORMATION
  Report Type: Other
  Country: US (occurrence: IN)
  Receive Date: 20241209
  Receipt Date: 20241209
  Transmission Date: 20250115
  Serious: Yes (Hospitalization)
  Sender: SAPTALIS PHARMACEUTICALS LLC
  Company Number: IN-Saptalis Pharmaceuticals LLC-2166746

PATIENT
  Age: 32 Year
  Sex: Male

DRUGS (3)
  1. LIKMEZ [Suspect]
     Active Substance: METRONIDAZOLE
     Indication: Antibiotic prophylaxis
  2. CEFTRIAXONE [Suspect]
     Active Substance: CEFTRIAXONE
  3. GENTAMICIN [Suspect]
     Active Substance: GENTAMICIN

REACTIONS (1)
  - Disseminated intravascular coagulation [Recovered/Resolved]
